FAERS Safety Report 5333040-9 (Version None)
Quarter: 2007Q2

REPORT INFORMATION
  Report Type: 
  Country: None (occurrence: None)
  Receive Date: 20070306
  Receipt Date: 20060628
  Transmission Date: 20071010
  Serious: Yes (Hospitalization)
  Sender: FDA-Public Use
  Company Number: A03200604251

PATIENT
  Age: 83 Year
  Sex: Male

DRUGS (4)
  1. PLAVIX [Suspect]
     Indication: TRANSIENT ISCHAEMIC ATTACK
     Dosage: 75 MG QD - ORAL
     Route: 048
     Dates: start: 20060106, end: 20060403
  2. BLINDED TRIAL MEDICATION - TABLET [Suspect]
     Indication: CARDIAC FAILURE
     Dosage: ORAL
     Route: 048
     Dates: start: 20060118, end: 20060615
  3. BLINDED TRIAL MEDICATION - TABLET [Suspect]
     Indication: LEFT VENTRICULAR DYSFUNCTION
     Dosage: ORAL
     Route: 048
     Dates: start: 20060118, end: 20060615
  4. ASPIRIN [Suspect]
     Indication: TRANSIENT ISCHAEMIC ATTACK
     Dosage: 81 MG QD - ORAL
     Route: 048
     Dates: start: 19960101, end: 20060403

REACTIONS (2)
  - ANAEMIA [None]
  - GASTROINTESTINAL HAEMORRHAGE [None]
